FAERS Safety Report 14417637 (Version 2)
Quarter: 2018Q1

REPORT INFORMATION
  Report Type: Spontaneous
  Country: US (occurrence: US)
  Receive Date: 20180122
  Receipt Date: 20180207
  Transmission Date: 20180509
  Serious: No
  Sender: FDA-Public Use
  Company Number: US-GLAXOSMITHKLINE-US2018009502

PATIENT
  Sex: Male
  Weight: 76.19 kg

DRUGS (4)
  1. NUCALA [Suspect]
     Active Substance: MEPOLIZUMAB
     Indication: ASTHMA
     Dosage: UNK UNK, CYC
     Route: 058
     Dates: start: 20171212, end: 20180109
  2. NEXIUM [Concomitant]
     Active Substance: ESOMEPRAZOLE MAGNESIUM
  3. LEVOTHYROXINE. [Concomitant]
     Active Substance: LEVOTHYROXINE
  4. AZOR (AMLODIPINE + OLMESARTAN MEDOXOMIL) [Concomitant]

REACTIONS (2)
  - Musculoskeletal pain [Not Recovered/Not Resolved]
  - Acne [Not Recovered/Not Resolved]
